FAERS Safety Report 10538607 (Version 1)
Quarter: 2014Q4

REPORT INFORMATION
  Report Type: Spontaneous
  Country: DE (occurrence: None)
  Receive Date: 20141021
  Receipt Date: 20141021
  Transmission Date: 20150529
  Serious: Yes (Hospitalization)
  Sender: FDA-Public Use
  Company Number: INT_00481_2014

PATIENT
  Age: 18 Year
  Sex: Female

DRUGS (6)
  1. APREPITANT. [Concomitant]
     Active Substance: APREPITANT
  2. CISPLATIN (CISPLATIN) (HQ SPECIALTY) [Suspect]
     Active Substance: CISPLATIN
     Indication: NASOPHARYNGEAL CANCER
     Dosage: ON DAY 1 OF CHEMOTHERAPY
  3. ONDANSETRON [Concomitant]
     Active Substance: ONDANSETRON
  4. LEUCOVORIN /00566701/ [Suspect]
     Active Substance: LEUCOVORIN
     Indication: NASOPHARYNGEAL CANCER
  5. DEXAMETHASONE. [Concomitant]
     Active Substance: DEXAMETHASONE
  6. 5-FLUOROURACIL /00098801/ [Suspect]
     Active Substance: FLUOROURACIL
     Indication: NASOPHARYNGEAL CANCER
     Dosage: ON DAYS 1 -5 OF CHEMOTHERAPY

REACTIONS (8)
  - Pain in extremity [None]
  - Intermittent claudication [None]
  - Paraesthesia [None]
  - Femoral artery occlusion [None]
  - Aortic occlusion [None]
  - Genital paraesthesia [None]
  - Muscle spasticity [None]
  - Embolism [None]
